FAERS Safety Report 5490379-4 (Version None)
Quarter: 2007Q4

REPORT INFORMATION
  Report Type: 
  Country: None (occurrence: None)
  Receive Date: 20071019
  Receipt Date: 20071010
  Transmission Date: 20080405
  Serious: Yes (Hospitalization, Other)
  Sender: FDA-Public Use
  Company Number: PHHO2007BR16796

PATIENT
  Age: 75 Year
  Sex: Female

DRUGS (2)
  1. DIOVAN [Suspect]
     Dosage: 160 MG, UNK
     Route: 048
     Dates: start: 20051001
  2. DIOVAN AMLO [Suspect]
     Dosage: 160/5 MG
     Route: 048

REACTIONS (4)
  - BLOOD PRESSURE INCREASED [None]
  - CARDIAC PACEMAKER INSERTION [None]
  - HEMIPLEGIA [None]
  - TONGUE SPASM [None]
